FAERS Safety Report 9398542 (Version 5)
Quarter: 2013Q3

REPORT INFORMATION
  Report Type: Spontaneous
  Country: US (occurrence: US)
  Receive Date: 20130712
  Receipt Date: 20130919
  Transmission Date: 20140515
  Serious: Yes (Hospitalization, Other)
  Sender: FDA-Public Use
  Company Number: US-JNJFOC-20130701904

PATIENT
  Age: 65 Year
  Sex: Female
  Weight: 43.09 kg

DRUGS (24)
  1. SIMPONI [Suspect]
     Indication: ARTHRITIS
     Route: 058
     Dates: start: 20120405, end: 201212
  2. SIMPONI [Suspect]
     Indication: ARTHRITIS
     Route: 058
     Dates: start: 201212
  3. SIMPONI [Suspect]
     Indication: OSTEOARTHRITIS
     Route: 058
     Dates: start: 20120405, end: 201212
  4. SIMPONI [Suspect]
     Indication: OSTEOARTHRITIS
     Route: 058
     Dates: start: 201212
  5. SIMPONI [Suspect]
     Indication: RHEUMATOID ARTHRITIS
     Route: 058
     Dates: start: 20120405, end: 201212
  6. SIMPONI [Suspect]
     Indication: RHEUMATOID ARTHRITIS
     Route: 058
     Dates: start: 201212
  7. DILAUDID [Suspect]
     Indication: FRACTURE PAIN
     Route: 048
     Dates: start: 20130320, end: 20130419
  8. PREDNISONE [Concomitant]
     Route: 065
  9. VITAMIN D [Concomitant]
     Dosage: 50000 UNITS
     Route: 065
  10. FOLIC ACID [Concomitant]
     Route: 065
  11. DORZOLAMIDE [Concomitant]
     Route: 047
  12. PREDNISOLONE [Concomitant]
     Route: 047
  13. DESONIDE [Concomitant]
     Dosage: 0.06%
     Route: 061
  14. CLONAZEPAM [Concomitant]
     Dosage: 1/2 TO 1 TABLET AS NECESSARY-DAILY
     Route: 065
  15. CLOBEX [Concomitant]
     Dosage: 0.05%, BOTH LOWER LEGS EVERY OTHER DAY
     Route: 065
  16. CALCITONIN [Concomitant]
     Route: 045
  17. VECTICAL [Concomitant]
     Dosage: BOTH LOWER LEGS AS NECESSARY
     Route: 065
  18. PROTOPIC [Concomitant]
     Dosage: 0.1 %, TO LEFT SIDE FACE ALTERNATIVELY WITH DESONIDE OINTMENT AS NECESSARY
     Route: 061
  19. METHOTREXATE [Concomitant]
     Route: 065
  20. LACTULOSE [Concomitant]
     Dosage: 10 6M/15ML SOLUTION, 1 TABLE SPOON
     Route: 048
  21. DRAMAMINE [Concomitant]
     Route: 065
  22. FENTANYL [Concomitant]
     Route: 062
  23. ASPIRIN [Concomitant]
     Route: 065
  24. FORTEO [Concomitant]
     Route: 065
     Dates: start: 20130716

REACTIONS (15)
  - Pneumothorax [Recovered/Resolved]
  - Arthritis [Not Recovered/Not Resolved]
  - Faecaloma [Recovered/Resolved]
  - Arthralgia [Recovered/Resolved]
  - Loss of consciousness [Recovered/Resolved]
  - Back injury [Recovered/Resolved]
  - Compression fracture [Not Recovered/Not Resolved]
  - Muscle strain [Recovered/Resolved]
  - Accidental exposure to product [Unknown]
  - Migraine [Recovered/Resolved]
  - Pyrexia [Recovered/Resolved]
  - Device malfunction [Unknown]
  - Abnormal loss of weight [Not Recovered/Not Resolved]
  - Drug dose omission [Not Recovered/Not Resolved]
  - Drug ineffective [Recovered/Resolved]
